FAERS Safety Report 8590933-7 (Version None)
Quarter: 2012Q3

REPORT INFORMATION
  Report Type: 
  Country: None (occurrence: None)
  Receive Date: 20120813
  Receipt Date: 20120803
  Transmission Date: 20120928
  Serious: Yes (Death)
  Sender: FDA-Public Use
  Company Number: US-BAXTER-2012BAX013678

PATIENT
  Sex: Male

DRUGS (1)
  1. SODIUM CHLORIDE INJ [Suspect]

REACTIONS (1)
  - CARDIAC FAILURE [None]
